FAERS Safety Report 5776968-8 (Version None)
Quarter: 2008Q2

REPORT INFORMATION
  Report Type: 
  Country: None (occurrence: None)
  Receive Date: 20080618
  Receipt Date: 20080409
  Transmission Date: 20081010
  Serious: No
  Sender: FDA-Public Use
  Company Number: US-ASTRAZENECA-2008UW07200

PATIENT
  Age: 64 Year
  Sex: Female

DRUGS (2)
  1. SYMBICORT [Suspect]
     Dosage: 160/4.5
     Route: 055
  2. SPIRIVA [Suspect]

REACTIONS (3)
  - GLOSSODYNIA [None]
  - SPEECH DISORDER [None]
  - SWOLLEN TONGUE [None]
